FAERS Safety Report 7537454-8 (Version None)
Quarter: 2011Q2

REPORT INFORMATION
  Report Type: 
  Country: None (occurrence: None)
  Receive Date: 20110603
  Receipt Date: 20110518
  Transmission Date: 20111010
  Serious: Yes (Other)
  Sender: FDA-Public Use
  Company Number: 2011MA006083

PATIENT
  Age: 3 Year
  Sex: Male

DRUGS (1)
  1. TRIAMCINOLONE ACETONIDE [Suspect]
     Indication: EXUDATIVE RETINOPATHY
     Dosage: 4 MG/0.1ML;1X;INJ

REACTIONS (3)
  - RETINAL DETACHMENT [None]
  - GLAUCOMA [None]
  - POST PROCEDURAL COMPLICATION [None]
